FAERS Safety Report 10212985 (Version 1)
Quarter: 2014Q2

REPORT INFORMATION
  Report Type: Spontaneous
  Country: US (occurrence: US)
  Receive Date: 20140602
  Receipt Date: 20140602
  Transmission Date: 20141212
  Serious: No
  Sender: FDA-Public Use
  Company Number: US-009507513-1405USA015096

PATIENT
  Sex: Female

DRUGS (2)
  1. ETONOGESTREL IMPLANT- UNKNOWN [Suspect]
     Indication: CONTRACEPTION
     Dosage: 68 MG/ONE ROD, INSERTED EVERY THREE YEARS
     Route: 059
     Dates: start: 201308
  2. PROZAC [Concomitant]
     Indication: DEPRESSION

REACTIONS (7)
  - Alopecia [Not Recovered/Not Resolved]
  - Anxiety [Not Recovered/Not Resolved]
  - Depression [Not Recovered/Not Resolved]
  - Weight increased [Not Recovered/Not Resolved]
  - Mood swings [Not Recovered/Not Resolved]
  - Nausea [Not Recovered/Not Resolved]
  - Medical device complication [Unknown]
